FAERS Safety Report 8000735-8 (Version None)
Quarter: 2011Q4

REPORT INFORMATION
  Report Type: 
  Country: None (occurrence: None)
  Receive Date: 20111222
  Receipt Date: 20111212
  Transmission Date: 20120403
  Serious: Yes (Hospitalization)
  Sender: FDA-Public Use
  Company Number: JP-ASTRAZENECA-2011SE50035

PATIENT
  Age: 25193 Day
  Sex: Male
  Weight: 57 kg

DRUGS (6)
  1. AZD1981 CODE NOT BROKEN [Concomitant]
     Indication: ASTHMA
     Route: 048
     Dates: start: 20110621, end: 20110818
  2. SWORD [Concomitant]
     Indication: INFECTION PROPHYLAXIS
     Route: 048
     Dates: end: 20110815
  3. PULMICORT [Suspect]
     Indication: ASTHMA
     Route: 055
  4. MUCODYNE [Concomitant]
     Indication: SPUTUM RETENTION
     Route: 048
  5. IDP [Concomitant]
     Indication: ASTHMA
     Route: 048
  6. SYMBICORT [Suspect]
     Indication: ASTHMA
     Dosage: 80/4.5 UG, 2 INHALATIONS TWICE DAILY
     Route: 055
     Dates: start: 20110607, end: 20110818

REACTIONS (1)
  - ASTHMA [None]
